FAERS Safety Report 19803327 (Version 1)
Quarter: 2021Q3

REPORT INFORMATION
  Report Type: Spontaneous
  Country: US (occurrence: US)
  Receive Date: 20210903
  Receipt Date: 20210903
  Transmission Date: 20211014
  Serious: Yes (Hospitalization)
  Sender: FDA-Public Use
  Company Number: None

PATIENT
  Age: 52 Year
  Sex: Female

DRUGS (1)
  1. KISQALI [Suspect]
     Active Substance: RIBOCICLIB
     Indication: NEOPLASM MALIGNANT
     Dosage: TAKE 3 TABLETS BY MOUTH DAILY AT THE SAME TIME FOR 21 DAYS OF A 28?DAY CYCLE.?
     Route: 048
     Dates: start: 20210402

REACTIONS (4)
  - Blood calcium increased [None]
  - Accidental exposure to product [None]
  - Eye swelling [None]
  - Fatigue [None]

NARRATIVE: CASE EVENT DATE: 20210421
